FAERS Safety Report 9098161 (Version 1)
Quarter: 2013Q1

REPORT INFORMATION
  Report Type: Spontaneous
  Country: CL (occurrence: CL)
  Receive Date: 20130213
  Receipt Date: 20130213
  Transmission Date: 20140127
  Serious: Yes (Other)
  Sender: FDA-Public Use
  Company Number: PHHY2013CL013779

PATIENT
  Sex: Female

DRUGS (3)
  1. ACLASTA [Suspect]
     Dosage: UNK UKN, UNK
     Route: 042
     Dates: start: 201205
  2. EUTIROX [Concomitant]
  3. SERTRALINA [Concomitant]

REACTIONS (2)
  - Pancreatic carcinoma [Not Recovered/Not Resolved]
  - Pain [Not Recovered/Not Resolved]
